FAERS Safety Report 24649866 (Version 1)
Quarter: 2024Q4

REPORT INFORMATION
  Report Type: Spontaneous
  Country: CN (occurrence: CN)
  Receive Date: 20241121
  Receipt Date: 20241121
  Transmission Date: 20250115
  Serious: Yes (Hospitalization)
  Sender: ABBVIE
  Company Number: CN-ABBVIE-6006929

PATIENT
  Age: 71 Year
  Sex: Female
  Weight: 53 kg

DRUGS (5)
  1. VENCLEXTA [Suspect]
     Active Substance: VENETOCLAX
     Indication: Acute leukaemia
     Dosage: 100 MILLIGRAM
     Route: 048
     Dates: start: 20240717, end: 20240717
  2. VENCLEXTA [Suspect]
     Active Substance: VENETOCLAX
     Indication: Acute leukaemia
     Dosage: 200 MILLIGRAM
     Route: 048
     Dates: start: 20240718, end: 20240718
  3. VENCLEXTA [Suspect]
     Active Substance: VENETOCLAX
     Indication: Acute leukaemia
     Dosage: 400 MILLIGRAM
     Route: 048
     Dates: start: 20240719, end: 20240722
  4. AZACITIDINE [Suspect]
     Active Substance: AZACITIDINE
     Indication: Acute leukaemia
     Dosage: 100 MILLIGRAM
     Route: 058
     Dates: start: 20240717, end: 20240724
  5. STERILE WATER [Concomitant]
     Active Substance: WATER
     Indication: Vehicle solution use
     Dosage: 4 MILLILITER
     Route: 058
     Dates: start: 20240717, end: 20240724

REACTIONS (1)
  - Full blood count decreased [Recovered/Resolved]

NARRATIVE: CASE EVENT DATE: 20240721
